FAERS Safety Report 19758960 (Version 1)
Quarter: 2021Q3

REPORT INFORMATION
  Report Type: Spontaneous
  Country: US (occurrence: US)
  Receive Date: 20210829
  Receipt Date: 20210829
  Transmission Date: 20211014
  Serious: Yes (Death, Other)
  Sender: FDA-Public Use
  Company Number: US-SA-2021SA283358

PATIENT

DRUGS (1)
  1. ZANTAC [Suspect]
     Active Substance: RANITIDINE HYDROCHLORIDE
     Dosage: UNK
     Dates: start: 200006, end: 201606

REACTIONS (2)
  - Colorectal cancer [Fatal]
  - Gastrointestinal carcinoma [Fatal]

NARRATIVE: CASE EVENT DATE: 20160929
